FAERS Safety Report 24748259 (Version 1)
Quarter: 2024Q4

REPORT INFORMATION
  Report Type: Spontaneous
  Country: GB (occurrence: GB)
  Receive Date: 20241218
  Receipt Date: 20241218
  Transmission Date: 20250115
  Serious: Yes (Other)
  Sender: TEVA
  Company Number: GB-MHRA-EMIS-233-e74498a8-687f-4b96-a347-e8cc81459d47

PATIENT
  Age: 88 Year
  Sex: Female
  Weight: 90 kg

DRUGS (2)
  1. RAMIPRIL [Suspect]
     Active Substance: RAMIPRIL
     Indication: Cardiac failure congestive
     Dosage: ONE TO BE TAKEN EACH DAY
     Route: 065
     Dates: start: 20241008
  2. BALNEUM PLUS CREAM [Concomitant]
     Indication: Pruritus
     Dosage: APPLY TO UPPER ARMS FOR ITCHING WHEN REQUIRED.?500G
     Route: 065
     Dates: start: 20241002, end: 20241114

REACTIONS (2)
  - Hallucination, visual [Recovered/Resolved]
  - Diarrhoea [Recovered/Resolved]
